FAERS Safety Report 21769525 (Version 1)
Quarter: 2022Q4

REPORT INFORMATION
  Report Type: Spontaneous
  Country: US (occurrence: US)
  Receive Date: 20221223
  Receipt Date: 20221223
  Transmission Date: 20230112
  Serious: No
  Sender: FDA-Public Use
  Company Number: US-SA-SAC20221221000042

PATIENT
  Sex: Male

DRUGS (9)
  1. DUPIXENT [Suspect]
     Active Substance: DUPILUMAB
     Indication: Dermatitis atopic
     Dosage: 300 MG, QOW
     Route: 058
     Dates: start: 20220323
  2. ALBUTEROL SULFATE [Concomitant]
     Active Substance: ALBUTEROL SULFATE
  3. BENZONATATE [Concomitant]
     Active Substance: BENZONATATE
  4. BUDESONIDE [Concomitant]
     Active Substance: BUDESONIDE
  5. CLOBETASOL [Concomitant]
     Active Substance: CLOBETASOL
  6. NAPROXEN [Concomitant]
     Active Substance: NAPROXEN
  7. PREDNISONE [Concomitant]
     Active Substance: PREDNISONE
  8. TRETINOIN [Concomitant]
     Active Substance: TRETINOIN
  9. METHYLPREDNISOLONE [Concomitant]
     Active Substance: METHYLPREDNISOLONE

REACTIONS (1)
  - Impaired quality of life [Not Recovered/Not Resolved]
